FAERS Safety Report 5722395-9 (Version None)
Quarter: 2008Q2

REPORT INFORMATION
  Report Type: 
  Country: None (occurrence: None)
  Receive Date: 20080429
  Receipt Date: 20080423
  Transmission Date: 20081010
  Serious: Yes (Other)
  Sender: FDA-Public Use
  Company Number: ES-MERCK-0710ESP00043

PATIENT
  Age: 40 Year
  Sex: Female

DRUGS (5)
  1. SINGULAIR [Suspect]
     Indication: ASTHMA
     Route: 048
     Dates: start: 20000401, end: 20000101
  2. SINGULAIR [Suspect]
     Route: 048
     Dates: start: 20060101, end: 20060101
  3. SINGULAIR [Suspect]
     Indication: NASAL POLYPS
     Route: 048
     Dates: start: 20000401, end: 20000101
  4. SINGULAIR [Suspect]
     Route: 048
     Dates: start: 20060101, end: 20060101
  5. ALBUTEROL SULFATE [Concomitant]
     Route: 065

REACTIONS (2)
  - OFF LABEL USE [None]
  - PULMONARY EOSINOPHILIA [None]
